FAERS Safety Report 4692435-7 (Version None)
Quarter: 2005Q2

REPORT INFORMATION
  Report Type: 
  Country: None (occurrence: None)
  Receive Date: 20050616
  Receipt Date: 20050601
  Transmission Date: 20051028
  Serious: Yes (Other)
  Sender: FDA-Public Use
  Company Number: EWC050644348

PATIENT
  Age: 35 Year
  Sex: Male

DRUGS (6)
  1. FLUOXETINE [Suspect]
     Indication: DEPRESSION
     Dosage: 20 MG
     Route: 048
     Dates: start: 20050426, end: 20050518
  2. GLIVEC          (IMATINIB MESILATE) [Concomitant]
  3. POSACONAZOLE [Concomitant]
  4. TRAZODONE [Concomitant]
  5. PARACETAMOL [Concomitant]
  6. AMPHOTERICIN B [Concomitant]

REACTIONS (4)
  - DRUG INTERACTION [None]
  - FUNGAL INFECTION [None]
  - HEPATITIS TOXIC [None]
  - VIRAL INFECTION [None]
